FAERS Safety Report 7790745-8 (Version None)
Quarter: 2011Q3

REPORT INFORMATION
  Report Type: 
  Country: None (occurrence: None)
  Receive Date: 20110930
  Receipt Date: 20110905
  Transmission Date: 20111222
  Serious: No
  Sender: FDA-Public Use
  Company Number: JP-UCBSA-040438

PATIENT
  Sex: Male

DRUGS (4)
  1. ASTAT [Concomitant]
     Indication: TINEA PEDIS
     Route: 061
     Dates: start: 20110801, end: 20110823
  2. XYZAL [Suspect]
     Indication: PRURITUS
     Route: 048
     Dates: start: 20110725, end: 20110823
  3. EKSALB [Concomitant]
     Route: 061
     Dates: start: 20110725, end: 20110823
  4. ASTAT [Concomitant]
     Route: 061
     Dates: start: 20110801, end: 20110823

REACTIONS (1)
  - HEPATIC FUNCTION ABNORMAL [None]
